FAERS Safety Report 9962884 (Version 1)
Quarter: 2014Q1

REPORT INFORMATION
  Report Type: Report from Study
  Country: US (occurrence: US)
  Receive Date: 20140305
  Receipt Date: 20140305
  Transmission Date: 20141002
  Serious: No
  Sender: FDA-Public Use
  Company Number: US-ABBVIE-13P-163-1111886-00

PATIENT
  Age: 37 Year
  Sex: Male

DRUGS (2)
  1. HUMIRA [Suspect]
     Indication: CROHN^S DISEASE
  2. PANTOPRAZOLE SODIUM [Concomitant]
     Indication: CROHN^S DISEASE

REACTIONS (3)
  - Wheezing [Not Recovered/Not Resolved]
  - Wound secretion [Not Recovered/Not Resolved]
  - Dermatitis contact [Not Recovered/Not Resolved]
